FAERS Safety Report 18489739 (Version 1)
Quarter: 2020Q4

REPORT INFORMATION
  Report Type: Spontaneous
  Country: US (occurrence: US)
  Receive Date: 20201110
  Receipt Date: 20201110
  Transmission Date: 20210114
  Serious: Yes (Other)
  Sender: FDA-Public Use
  Company Number: None

PATIENT
  Sex: Female

DRUGS (2)
  1. LATANOPROST 0.005% [Suspect]
     Active Substance: LATANOPROST
  2. TRAVATAN Z [Suspect]
     Active Substance: TRAVOPROST

REACTIONS (2)
  - Therapy non-responder [None]
  - Treatment failure [None]
